FAERS Safety Report 11069868 (Version 1)
Quarter: 2015Q2

REPORT INFORMATION
  Report Type: Spontaneous
  Country: US (occurrence: US)
  Receive Date: 20150427
  Receipt Date: 20150427
  Transmission Date: 20150821
  Serious: No
  Sender: FDA-Public Use
  Company Number: US-ASTRAZENECA-2015SE36340

PATIENT
  Sex: Female
  Weight: 63.5 kg

DRUGS (2)
  1. CRESTOR [Suspect]
     Active Substance: ROSUVASTATIN CALCIUM
     Indication: LOW DENSITY LIPOPROTEIN INCREASED
     Route: 048
     Dates: start: 2007
  2. BABY ASPIRIN [Concomitant]
     Active Substance: ASPIRIN
     Indication: INFLAMMATION
     Dosage: DAILY
     Route: 048

REACTIONS (2)
  - Abdominal discomfort [Unknown]
  - Body height decreased [Unknown]
